FAERS Safety Report 14902385 (Version 1)
Quarter: 2018Q2

REPORT INFORMATION
  Report Type: Spontaneous
  Country: CA (occurrence: CA)
  Receive Date: 20180516
  Receipt Date: 20180516
  Transmission Date: 20180711
  Serious: Yes (Other)
  Sender: FDA-Public Use
  Company Number: CA-ANIPHARMA-2018-CA-000412

PATIENT
  Sex: Female

DRUGS (2)
  1. IBRANCE [Concomitant]
     Active Substance: PALBOCICLIB
     Dosage: 125 MG DAILY
     Route: 048
     Dates: start: 20180426
  2. ARIMIDEX [Suspect]
     Active Substance: ANASTROZOLE
     Route: 048
     Dates: start: 201604, end: 201708

REACTIONS (2)
  - Drug ineffective [Unknown]
  - Malignant neoplasm progression [Unknown]
